FAERS Safety Report 14109076 (Version 1)
Quarter: 2017Q4

REPORT INFORMATION
  Report Type: Spontaneous
  Country: US (occurrence: US)
  Receive Date: 20171019
  Receipt Date: 20171019
  Transmission Date: 20180321
  Serious: No
  Sender: FDA-Public Use
  Company Number: US-OTSUKA-2017_015088

PATIENT
  Sex: Male

DRUGS (4)
  1. ZOLOFT [Concomitant]
     Active Substance: SERTRALINE HYDROCHLORIDE
     Indication: DEPRESSION
     Dosage: UNK
     Route: 065
  2. REXULTI [Suspect]
     Active Substance: BREXPIPRAZOLE
     Indication: ANXIETY
     Dosage: 0.5 MG, QD
     Route: 065
     Dates: start: 2017
  3. LORAZEPAM. [Concomitant]
     Active Substance: LORAZEPAM
     Indication: ANXIETY
     Dosage: 4 DF, QD
     Route: 065
  4. LORAZEPAM. [Concomitant]
     Active Substance: LORAZEPAM
     Dosage: 2 DF, QD
     Route: 065

REACTIONS (5)
  - Discomfort [Recovered/Resolved]
  - Blister [Recovered/Resolved]
  - Herpes zoster [Recovered/Resolved]
  - Off label use [Unknown]
  - Petechiae [Recovered/Resolved]

NARRATIVE: CASE EVENT DATE: 2017
